FAERS Safety Report 7813810-5 (Version None)
Quarter: 2011Q4

REPORT INFORMATION
  Report Type: 
  Country: None (occurrence: None)
  Receive Date: 20111014
  Receipt Date: 20111011
  Transmission Date: 20120403
  Serious: No
  Sender: FDA-Public Use
  Company Number: US-PFIZER INC-2011243128

PATIENT
  Sex: Female

DRUGS (3)
  1. IBUPROFEN (ADVIL) [Suspect]
     Indication: HEADACHE
     Dosage: 200 MG, AS NEEDED
     Route: 048
     Dates: start: 20030101
  2. IBUPROFEN (ADVIL) [Suspect]
     Dosage: 400 MG, AS NEEDED
     Route: 048
  3. ACETYLSALICYLIC ACID [Concomitant]
     Indication: BACK PAIN
     Dosage: 325 MG, UNK

REACTIONS (1)
  - DRUG INEFFECTIVE [None]
